FAERS Safety Report 6963134-3 (Version None)
Quarter: 2010Q3

REPORT INFORMATION
  Report Type: 
  Country: None (occurrence: None)
  Receive Date: 20100902
  Receipt Date: 20100820
  Transmission Date: 20110219
  Serious: Yes (Hospitalization, Disabling, Other)
  Sender: FDA-Public Use
  Company Number: PHHY2010GB25924

PATIENT
  Sex: Female
  Weight: 88 kg

DRUGS (3)
  1. CLOZARIL [Suspect]
     Indication: SCHIZOPHRENIA, PARANOID TYPE
     Dosage: UNK
     Dates: start: 20040823
  2. CLOZARIL [Suspect]
     Dosage: 250 MG, QD
     Route: 048
     Dates: start: 20100811
  3. PROCYCLIDINE HYDROCHLORIDE 2MG TAB [Concomitant]
     Route: 048

REACTIONS (11)
  - ANTIPSYCHOTIC DRUG LEVEL INCREASED [None]
  - APATHY [None]
  - ASTHENIA [None]
  - DROP ATTACKS [None]
  - EMOTIONAL DISORDER [None]
  - GAIT DISTURBANCE [None]
  - GENERAL PHYSICAL HEALTH DETERIORATION [None]
  - INCONTINENCE [None]
  - MOBILITY DECREASED [None]
  - VERTIGO [None]
  - WHEELCHAIR USER [None]
